FAERS Safety Report 5261513-6 (Version None)
Quarter: 2007Q1

REPORT INFORMATION
  Report Type: 
  Country: None (occurrence: None)
  Receive Date: 20070307
  Receipt Date: 20070223
  Transmission Date: 20070707
  Serious: Yes (Hospitalization)
  Sender: FDA-Public Use
  Company Number: CFNT Y-36 2

PATIENT
  Age: 31 Year
  Sex: Male

DRUGS (3)
  1. CEFDITOREN PIVOXIL 300 MG [Suspect]
     Indication: INFECTION PROPHYLAXIS
     Dosage: 300 MG PO
     Route: 048
     Dates: start: 20061124, end: 20061127
  2. SOLETON (ZALTOPROFEN) [Concomitant]
  3. EMYNASE P (PRONASE) [Concomitant]

REACTIONS (1)
  - LIP SWELLING [None]
